FAERS Safety Report 18325320 (Version 1)
Quarter: 2020Q3

REPORT INFORMATION
  Report Type: Spontaneous
  Country: CN (occurrence: CN)
  Receive Date: 20200929
  Receipt Date: 20200929
  Transmission Date: 20201103
  Serious: Yes (Other)
  Sender: FDA-Public Use
  Company Number: CN-PFIZER INC-2020369195

PATIENT
  Age: 10 Year
  Sex: Male

DRUGS (2)
  1. SODIUM CHLORIDE. [Concomitant]
     Active Substance: SODIUM CHLORIDE
     Indication: VEHICLE SOLUTION USE
     Dosage: 50 ML, 1X/DAY
     Route: 041
     Dates: start: 20200917, end: 20200919
  2. SOLU?MEDROL [Suspect]
     Active Substance: METHYLPREDNISOLONE SODIUM SUCCINATE
     Indication: NEPHROTIC SYNDROME
     Dosage: 40 MG, 1X/DAY
     Route: 041
     Dates: start: 20200917, end: 20200919

REACTIONS (5)
  - Hypoproteinaemia [Unknown]
  - Vomiting [Recovered/Resolved]
  - Renal hypertension [Unknown]
  - Nausea [Recovered/Resolved]
  - Gastrointestinal oedema [Unknown]

NARRATIVE: CASE EVENT DATE: 20200917
